FAERS Safety Report 7281857-6 (Version None)
Quarter: 2011Q1

REPORT INFORMATION
  Report Type: 
  Country: None (occurrence: None)
  Receive Date: 20110208
  Receipt Date: 20110131
  Transmission Date: 20110831
  Serious: Yes (Hospitalization, Other)
  Sender: FDA-Public Use
  Company Number: PHHO2011FR02117

PATIENT
  Sex: Male
  Weight: 80 kg

DRUGS (4)
  1. BACTRIM [Concomitant]
  2. SIMULECT [Concomitant]
  3. PENTACARINAT [Concomitant]
  4. STI571/CGP57148B [Suspect]
     Indication: ACUTE LYMPHOCYTIC LEUKAEMIA
     Dosage: UNK
     Route: 048
     Dates: end: 20100927

REACTIONS (11)
  - NEUTROPENIA [None]
  - HYPERTENSION [None]
  - GASTROINTESTINAL DISORDER [None]
  - BLOOD LACTATE DEHYDROGENASE INCREASED [None]
  - TYPE 2 DIABETES MELLITUS [None]
  - GRAFT VERSUS HOST DISEASE [None]
  - THROMBOCYTOPENIA [None]
  - THROMBOTIC MICROANGIOPATHY [None]
  - PYREXIA [None]
  - OEDEMA PERIPHERAL [None]
  - WEIGHT INCREASED [None]
